FAERS Safety Report 11520913 (Version 1)
Quarter: 2015Q3

REPORT INFORMATION
  Report Type: Spontaneous
  Country: US (occurrence: US)
  Receive Date: 20150918
  Receipt Date: 20150918
  Transmission Date: 20151125
  Serious: No
  Sender: FDA-Public Use
  Company Number: US-ROCHE-737757

PATIENT
  Age: 59 Year
  Sex: Female
  Weight: 77.1 kg

DRUGS (1)
  1. PEGASYS [Suspect]
     Active Substance: PEGINTERFERON ALFA-2A
     Indication: HEPATITIS C
     Dosage: FORM: SYRINGE
     Route: 058

REACTIONS (1)
  - Procedural complication [Unknown]

NARRATIVE: CASE EVENT DATE: 201010
